FAERS Safety Report 6359930-6 (Version None)
Quarter: 2009Q3

REPORT INFORMATION
  Report Type: 
  Country: None (occurrence: None)
  Receive Date: 20090917
  Receipt Date: 20090908
  Transmission Date: 20100115
  Serious: Yes (Hospitalization, Other)
  Sender: FDA-Public Use
  Company Number: JP-PFIZER INC-2009225188

PATIENT
  Age: 58 Year

DRUGS (2)
  1. NORVASC [Suspect]
     Indication: HYPERTENSION
     Dosage: 5 MG, 1X/DAY
     Dates: start: 20050101, end: 20090501
  2. NORVASC [Suspect]
     Dosage: 5 MG, 1X/DAY
     Dates: start: 20090603

REACTIONS (2)
  - FOOD INTERACTION [None]
  - LOSS OF CONSCIOUSNESS [None]
